FAERS Safety Report 20983018 (Version 2)
Quarter: 2022Q2

REPORT INFORMATION
  Report Type: Report from Study
  Country: IT (occurrence: IT)
  Receive Date: 20220620
  Receipt Date: 20220627
  Transmission Date: 20220721
  Serious: Yes (Hospitalization)
  Sender: FDA-Public Use
  Company Number: IT-EXELIXIS-XL18422053090

PATIENT

DRUGS (2)
  1. CABOZANTINIB [Suspect]
     Active Substance: CABOZANTINIB
     Indication: Bladder cancer
     Dosage: 40 MG, QD
     Route: 048
     Dates: start: 20210121
  2. DURVALUMAB [Suspect]
     Active Substance: DURVALUMAB
     Indication: Transitional cell carcinoma
     Dosage: 1500 MG
     Route: 042
     Dates: start: 20210121, end: 20220415

REACTIONS (2)
  - Urinary tract infection [Not Recovered/Not Resolved]
  - Metastases to meninges [Not Recovered/Not Resolved]

NARRATIVE: CASE EVENT DATE: 20220515
